FAERS Safety Report 20544841 (Version 1)
Quarter: 2022Q1

REPORT INFORMATION
  Report Type: Spontaneous
  Country: FR (occurrence: FR)
  Receive Date: 20220303
  Receipt Date: 20220303
  Transmission Date: 20220423
  Serious: Yes (Other)
  Sender: FDA-Public Use
  Company Number: None

PATIENT
  Age: 70 Year
  Sex: Female
  Weight: 80 kg

DRUGS (2)
  1. ATORVASTATIN [Suspect]
     Active Substance: ATORVASTATIN
     Indication: Ischaemic stroke
     Dosage: 80 MG FILM-COATED TABLETS?1/D
     Route: 048
     Dates: start: 20191014, end: 20200412
  2. AMLODIPINE\INDAPAMIDE [Suspect]
     Active Substance: AMLODIPINE\INDAPAMIDE
     Indication: Ischaemic stroke
     Route: 048
     Dates: start: 201910

REACTIONS (2)
  - Cutaneous lupus erythematosus [Recovering/Resolving]
  - Condition aggravated [Recovering/Resolving]

NARRATIVE: CASE EVENT DATE: 20200301
